FAERS Safety Report 15684953 (Version 1)
Quarter: 2018Q4

REPORT INFORMATION
  Report Type: Spontaneous
  Country: US (occurrence: US)
  Receive Date: 20181204
  Receipt Date: 20181204
  Transmission Date: 20190205
  Serious: Yes (Death)
  Sender: FDA-Public Use
  Company Number: US-ANTARES PHARMA, INC.-2018-LIT-ME-0557

PATIENT
  Age: 82 Year
  Sex: Female

DRUGS (5)
  1. DIGOXIN. [Concomitant]
     Active Substance: DIGOXIN
     Indication: CARDIAC FAILURE CONGESTIVE
  2. APIXABAN [Concomitant]
     Active Substance: APIXABAN
     Indication: ATRIAL FIBRILLATION
  3. FUROSEMID                          /00032601/ [Concomitant]
     Active Substance: FUROSEMIDE
     Indication: CARDIAC FAILURE CONGESTIVE
  4. METHOTREXATE. [Suspect]
     Active Substance: METHOTREXATE
     Indication: RHEUMATOID ARTHRITIS
     Dosage: 7.5 MG, WEEKLY
  5. REPAGLINIDE. [Concomitant]
     Active Substance: REPAGLINIDE
     Indication: DIABETES MELLITUS

REACTIONS (13)
  - Respiratory failure [Fatal]
  - Septic shock [Fatal]
  - Renal impairment [Fatal]
  - Haematemesis [Fatal]
  - Ulcer haemorrhage [Fatal]
  - Melaena [Fatal]
  - Neutropenia [Fatal]
  - Thrombocytopenia [Fatal]
  - Hypotension [Fatal]
  - Anaemia macrocytic [Fatal]
  - Toxicity to various agents [Fatal]
  - Pancytopenia [Fatal]
  - Pneumonia [Fatal]
